FAERS Safety Report 5673240-1 (Version None)
Quarter: 2008Q1

REPORT INFORMATION
  Report Type: 
  Country: None (occurrence: None)
  Receive Date: 20080319
  Receipt Date: 20080312
  Transmission Date: 20080703
  Serious: No
  Sender: FDA-Public Use
  Company Number: MX-ELI_LILLY_AND_COMPANY-MX200803002786

PATIENT
  Age: 54 Year
  Sex: Male

DRUGS (1)
  1. CIALIS [Suspect]
     Dosage: 40 MG, UNKNOWN
     Route: 048

REACTIONS (3)
  - BACK PAIN [None]
  - INTENTIONAL OVERDOSE [None]
  - VISION BLURRED [None]
